FAERS Safety Report 4297438-2 (Version None)
Quarter: 2004Q1

REPORT INFORMATION
  Report Type: 
  Country: None (occurrence: None)
  Receive Date: 20040218
  Receipt Date: 20040209
  Transmission Date: 20041129
  Serious: Yes (Other)
  Sender: FDA-Public Use
  Company Number: ES-ROCHE-358657

PATIENT
  Age: 34 Year
  Sex: Male
  Weight: 84 kg

DRUGS (6)
  1. PEG-INTERFERON ALFA 2A (RO 25-8310) [Suspect]
     Route: 058
     Dates: start: 20031118, end: 20040113
  2. RIBAVIRIN [Suspect]
     Route: 048
     Dates: start: 20031118, end: 20040113
  3. INDINAVIR [Concomitant]
     Route: 048
     Dates: start: 19970117
  4. RITONAVIR [Concomitant]
     Route: 048
     Dates: start: 19961001
  5. TENOFOVIR [Concomitant]
     Route: 048
     Dates: start: 20031016
  6. 3TC [Concomitant]
     Route: 048
     Dates: start: 19961016

REACTIONS (2)
  - GINGIVAL BLEEDING [None]
  - THROMBOCYTOPENIA [None]
